FAERS Safety Report 7210108-3 (Version None)
Quarter: 2011Q1

REPORT INFORMATION
  Report Type: 
  Country: None (occurrence: None)
  Receive Date: 20110105
  Receipt Date: 20101028
  Transmission Date: 20110831
  Serious: Yes (Other)
  Sender: FDA-Public Use
  Company Number: ES-BAYER-201043723GPV

PATIENT
  Age: 53 Year
  Sex: Male

DRUGS (1)
  1. NEXAVAR [Suspect]
     Indication: HEPATIC NEOPLASM MALIGNANT
     Route: 048
     Dates: start: 20090716, end: 20091002

REACTIONS (4)
  - EOSINOPHILIC FASCIITIS [None]
  - ERYTHEMA [None]
  - PAIN IN EXTREMITY [None]
  - SUBCUTANEOUS NODULE [None]
